FAERS Safety Report 5775086-2 (Version None)
Quarter: 2008Q2

REPORT INFORMATION
  Report Type: 
  Country: None (occurrence: None)
  Receive Date: 20080616
  Receipt Date: 20080616
  Transmission Date: 20081010
  Serious: No
  Sender: FDA-Public Use
  Company Number: None

PATIENT
  Sex: Female
  Weight: 70.3075 kg

DRUGS (1)
  1. RECLAST [Suspect]
     Indication: OSTEOPOROSIS
     Dosage: ? ONCE A YEAR IV
     Route: 042
     Dates: start: 20071220

REACTIONS (3)
  - ARTHRALGIA [None]
  - MUSCLE TIGHTNESS [None]
  - MYALGIA [None]
